FAERS Safety Report 11533767 (Version 1)
Quarter: 2015Q3

REPORT INFORMATION
  Report Type: Spontaneous
  Country: FR (occurrence: FR)
  Receive Date: 20150922
  Receipt Date: 20150922
  Transmission Date: 20151125
  Serious: Yes (Other)
  Sender: FDA-Public Use
  Company Number: FR-ROCHE-1636650

PATIENT
  Age: 49 Year
  Sex: Male

DRUGS (3)
  1. DUSPATALIN [Concomitant]
     Active Substance: MEBEVERINE HYDROCHLORIDE
  2. LOPERAMIDE [Concomitant]
     Active Substance: LOPERAMIDE
  3. XOLAIR [Suspect]
     Active Substance: OMALIZUMAB
     Indication: ASTHMA
     Route: 058

REACTIONS (3)
  - Gastrointestinal disorder [Unknown]
  - Dyspepsia [Not Recovered/Not Resolved]
  - Injection site haematoma [Not Recovered/Not Resolved]

NARRATIVE: CASE EVENT DATE: 201508
